FAERS Safety Report 24189185 (Version 1)
Quarter: 2024Q3

REPORT INFORMATION
  Report Type: Spontaneous
  Country: US (occurrence: None)
  Receive Date: 20240807
  Receipt Date: 20240807
  Transmission Date: 20241017
  Serious: Yes (Hospitalization)
  Sender: Public
  Company Number: None

PATIENT
  Sex: Male

DRUGS (11)
  1. ELIGARD [Suspect]
     Active Substance: LEUPROLIDE ACETATE
     Dosage: OTHER FREQUENCY : EVERT 6 MONTHS;?
     Route: 058
     Dates: start: 20220215
  2. COMPLETE 50+ MENS [Concomitant]
  3. FISH OIL [Concomitant]
  4. IRON [Concomitant]
  5. LASIX [Concomitant]
     Active Substance: FUROSEMIDE
  6. LEG CRAMPS [Concomitant]
     Active Substance: ACONITUM NAPELLUS\ARNICA MONTANA\LEDUM PALUSTRE TWIG\MAGNESIUM PHOSPHATE, DIBASIC TRIHYDRATE\TOXICOD
  7. LIPITOR [Concomitant]
     Active Substance: ATORVASTATIN CALCIUM
  8. LOSARTAN POTASSIUM [Concomitant]
     Active Substance: LOSARTAN POTASSIUM
  9. MAGNESIUM [Concomitant]
  10. VITAMINS [Suspect]
     Active Substance: VITAMINS
  11. OXYCODONE [Concomitant]
     Active Substance: OXYCODONE

REACTIONS (1)
  - Pneumonia aspiration [None]
